FAERS Safety Report 4649986-0 (Version None)
Quarter: 2005Q2

REPORT INFORMATION
  Report Type: 
  Country: None (occurrence: None)
  Receive Date: 20050428
  Receipt Date: 20050422
  Transmission Date: 20051028
  Serious: Yes (Life-Threatening)
  Sender: FDA-Public Use
  Company Number: 2005-127686-NL

PATIENT
  Age: 68 Year
  Sex: Female

DRUGS (2)
  1. ZEMURON [Suspect]
     Dosage: DF INTRAVENOUS (NOS)
     Route: 042
     Dates: start: 20050421, end: 20050421
  2. DIPRIVAN [Suspect]
     Dosage: INTRAVENOUS (NOS)
     Route: 042
     Dates: start: 20050421, end: 20050421

REACTIONS (2)
  - CARDIAC ARREST [None]
  - MYOCARDIAL INFARCTION [None]
